FAERS Safety Report 8889046 (Version 2)
Quarter: 2012Q4

REPORT INFORMATION
  Report Type: 
  Country: FR (occurrence: FR)
  Receive Date: 20121106
  Receipt Date: 20121207
  Transmission Date: 20130627
  Serious: Yes (Hospitalization)
  Sender: FDA-Public Use
  Company Number: FR-BRISTOL-MYERS SQUIBB COMPANY-17082330

PATIENT
  Age: 60 Year
  Sex: Male

DRUGS (5)
  1. ABILIFY TABS 10 MG [Suspect]
     Indication: BIPOLAR DISORDER
     Dates: end: 20120725
  2. BACLOFEN [Suspect]
     Indication: ALCOHOLISM
     Dosage: 20Jun12 12tb/d(120mg)
dos inc to 16tbs/d(160mg)10Jul12
dos inc 20tb/d(200mg)19Jul12
stop 25Jul12
     Dates: start: 20120620, end: 20120725
  3. LAMICTAL [Suspect]
     Dosage: Tab
     Route: 048
  4. NOCTAMIDE [Suspect]
     Dosage: Tab
     Route: 048
  5. VALIUM [Suspect]
     Dosage: Tab

REACTIONS (5)
  - Mania [Unknown]
  - Elevated mood [Unknown]
  - Compulsive shopping [Unknown]
  - Sleep disorder [Unknown]
  - Overdose [Unknown]
